FAERS Safety Report 25141996 (Version 1)
Quarter: 2025Q1

REPORT INFORMATION
  Report Type: Spontaneous
  Country: FR (occurrence: FR)
  Receive Date: 20250331
  Receipt Date: 20250331
  Transmission Date: 20250409
  Serious: Yes (Hospitalization)
  Sender: MYLAN
  Company Number: None

PATIENT
  Age: 27 Year
  Sex: Female
  Weight: 66 kg

DRUGS (16)
  1. PANTOPRAZOLE [Suspect]
     Active Substance: PANTOPRAZOLE
     Indication: Gastrooesophageal reflux disease
     Dosage: 1 DOSAGE FORM, QD
     Dates: start: 20250123, end: 20250307
  2. PANTOPRAZOLE [Suspect]
     Active Substance: PANTOPRAZOLE
     Dosage: 1 DOSAGE FORM, QD
     Route: 048
     Dates: start: 20250123, end: 20250307
  3. PANTOPRAZOLE [Suspect]
     Active Substance: PANTOPRAZOLE
     Dosage: 1 DOSAGE FORM, QD
     Route: 048
     Dates: start: 20250123, end: 20250307
  4. PANTOPRAZOLE [Suspect]
     Active Substance: PANTOPRAZOLE
     Dosage: 1 DOSAGE FORM, QD
     Dates: start: 20250123, end: 20250307
  5. AVASTIN [Suspect]
     Active Substance: BEVACIZUMAB
     Indication: Neoplasm malignant
     Dosage: 7.5 MILLIGRAM/KILOGRAM, Q2W (BIWEEKLY)
     Dates: start: 20241209, end: 20250127
  6. AVASTIN [Suspect]
     Active Substance: BEVACIZUMAB
     Dosage: 7.5 MILLIGRAM/KILOGRAM, Q2W (BIWEEKLY)
     Route: 042
     Dates: start: 20241209, end: 20250127
  7. AVASTIN [Suspect]
     Active Substance: BEVACIZUMAB
     Dosage: 7.5 MILLIGRAM/KILOGRAM, Q2W (BIWEEKLY)
     Route: 042
     Dates: start: 20241209, end: 20250127
  8. AVASTIN [Suspect]
     Active Substance: BEVACIZUMAB
     Dosage: 7.5 MILLIGRAM/KILOGRAM, Q2W (BIWEEKLY)
     Dates: start: 20241209, end: 20250127
  9. TOCILIZUMAB [Suspect]
     Active Substance: TOCILIZUMAB
     Indication: Antiinflammatory therapy
     Dates: start: 20250131, end: 20250131
  10. TOCILIZUMAB [Suspect]
     Active Substance: TOCILIZUMAB
     Route: 042
     Dates: start: 20250131, end: 20250131
  11. TOCILIZUMAB [Suspect]
     Active Substance: TOCILIZUMAB
     Route: 042
     Dates: start: 20250131, end: 20250131
  12. TOCILIZUMAB [Suspect]
     Active Substance: TOCILIZUMAB
     Dates: start: 20250131, end: 20250131
  13. PIPERACILLIN SODIUM\TAZOBACTAM SODIUM [Suspect]
     Active Substance: PIPERACILLIN SODIUM\TAZOBACTAM SODIUM
     Indication: Antibiotic therapy
     Dosage: 4 GRAM, QD
     Dates: start: 20250220
  14. PIPERACILLIN SODIUM\TAZOBACTAM SODIUM [Suspect]
     Active Substance: PIPERACILLIN SODIUM\TAZOBACTAM SODIUM
     Dosage: 4 GRAM, QD
     Route: 042
     Dates: start: 20250220
  15. PIPERACILLIN SODIUM\TAZOBACTAM SODIUM [Suspect]
     Active Substance: PIPERACILLIN SODIUM\TAZOBACTAM SODIUM
     Dosage: 4 GRAM, QD
     Route: 042
     Dates: start: 20250220
  16. PIPERACILLIN SODIUM\TAZOBACTAM SODIUM [Suspect]
     Active Substance: PIPERACILLIN SODIUM\TAZOBACTAM SODIUM
     Dosage: 4 GRAM, QD
     Dates: start: 20250220

REACTIONS (1)
  - Colitis ulcerative [Recovering/Resolving]

NARRATIVE: CASE EVENT DATE: 20250224
